FAERS Safety Report 24450240 (Version 1)
Quarter: 2024Q4

REPORT INFORMATION
  Report Type: Spontaneous
  Country: US (occurrence: None)
  Receive Date: 20241016
  Receipt Date: 20241016
  Transmission Date: 20250114
  Serious: Yes (Life-Threatening, Hospitalization, Other)
  Sender: Public
  Company Number: None

PATIENT
  Age: 69 Year
  Sex: Male

DRUGS (5)
  1. BUPRENORPHINE\NALOXONE [Suspect]
     Active Substance: BUPRENORPHINE\NALOXONE
     Indication: Drug withdrawal syndrome
     Route: 048
     Dates: start: 20240314, end: 20240913
  2. AMLODIPINE [Concomitant]
     Active Substance: AMLODIPINE BESYLATE
  3. VALSARTAN [Concomitant]
     Active Substance: VALSARTAN
  4. DESCOVY [Concomitant]
     Active Substance: EMTRICITABINE\TENOFOVIR ALAFENAMIDE FUMARATE
  5. PIFELTRO [Concomitant]
     Active Substance: DORAVIRINE

REACTIONS (15)
  - Decreased appetite [None]
  - Weight decreased [None]
  - Loss of libido [None]
  - Constipation [None]
  - Muscle atrophy [None]
  - Impaired gastric emptying [None]
  - Vomiting [None]
  - Headache [None]
  - Tremor [None]
  - Muscular weakness [None]
  - Insomnia [None]
  - Pain in extremity [None]
  - Pain in extremity [None]
  - Decreased interest [None]
  - Drug withdrawal syndrome [None]

NARRATIVE: CASE EVENT DATE: 20240801
